FAERS Safety Report 9752262 (Version 1)
Quarter: 2013Q4

REPORT INFORMATION
  Report Type: Spontaneous
  Country: US (occurrence: None)
  Receive Date: 20131212
  Receipt Date: 20131212
  Transmission Date: 20140711
  Serious: Yes (Life-Threatening, Hospitalization, Disabling)
  Sender: FDA-Public Use
  Company Number: None

PATIENT
  Age: 57 Year
  Sex: Male

DRUGS (4)
  1. ZOLPIDEM TARTRATE [Suspect]
     Indication: INSOMNIA
     Route: 048
     Dates: start: 201205, end: 20131026
  2. LISINOPRIL [Concomitant]
  3. TRAMADOL [Concomitant]
  4. FLEXERIL [Concomitant]

REACTIONS (3)
  - Somnambulism [None]
  - Memory impairment [None]
  - Road traffic accident [None]
